FAERS Safety Report 22326565 (Version 1)
Quarter: 2023Q2

REPORT INFORMATION
  Report Type: Spontaneous
  Country: SA (occurrence: SA)
  Receive Date: 20230516
  Receipt Date: 20230516
  Transmission Date: 20230722
  Serious: Yes (Other)
  Sender: FDA-Public Use
  Company Number: SA-ELI_LILLY_AND_COMPANY-SA202305003971

PATIENT
  Sex: Female

DRUGS (1)
  1. ABEMACICLIB [Suspect]
     Active Substance: ABEMACICLIB
     Indication: Product used for unknown indication
     Dosage: 150 MG, BID
     Route: 048

REACTIONS (2)
  - Hepatotoxicity [Unknown]
  - Malignant neoplasm progression [Unknown]
